FAERS Safety Report 5735839-3 (Version None)
Quarter: 2008Q2

REPORT INFORMATION
  Report Type: 
  Country: None (occurrence: None)
  Receive Date: 20080509
  Receipt Date: 20080509
  Transmission Date: 20081010
  Serious: No
  Sender: FDA-Public Use
  Company Number: None

PATIENT
  Age: 45 Year
  Sex: Female
  Weight: 49.8957 kg

DRUGS (2)
  1. PRO-HEALTH MOUTHWASH CREST [Suspect]
     Dosage: 2 X DAILY PO
     Route: 048
     Dates: start: 20080427, end: 20080430
  2. PRO-HEALTH MOUTHWASH CREST [Suspect]
     Dosage: 2 X DAILY PO
     Route: 048
     Dates: start: 20080506, end: 20080508

REACTIONS (2)
  - DYSGEUSIA [None]
  - HYPOAESTHESIA ORAL [None]
